FAERS Safety Report 13876174 (Version 3)
Quarter: 2018Q1

REPORT INFORMATION
  Report Type: Spontaneous
  Country: US (occurrence: US)
  Receive Date: 20170817
  Receipt Date: 20180116
  Transmission Date: 20180508
  Serious: Yes (Other)
  Sender: FDA-Public Use
  Company Number: US-PFIZER INC-2017352732

PATIENT
  Age: 43 Year
  Sex: Female
  Weight: 75.3 kg

DRUGS (14)
  1. CLONIDINE. [Concomitant]
     Active Substance: CLONIDINE
     Indication: HOT FLUSH
     Dosage: 0.1 MG, 3X/DAY, (EVERY 8 HOURS)
     Route: 048
  2. LISINOPRIL. [Concomitant]
     Active Substance: LISINOPRIL
     Dosage: 40 MG, 1X/DAY
     Route: 048
     Dates: start: 2007
  3. IBRANCE [Interacting]
     Active Substance: PALBOCICLIB
     Indication: OESTROGEN RECEPTOR POSITIVE BREAST CANCER
     Dosage: 75 MG, 1X/DAY
     Route: 048
  4. CARVEDILOL. [Concomitant]
     Active Substance: CARVEDILOL
     Indication: HYPERTENSION
     Dosage: 12.5 MG, 2X/DAY
     Route: 048
     Dates: start: 201709
  5. CLONAZEPAM. [Concomitant]
     Active Substance: CLONAZEPAM
     Indication: ANXIETY
     Dosage: 0.5 MG, AS NEEDED
     Route: 048
     Dates: start: 201707
  6. CRANBERRY. [Concomitant]
     Active Substance: CRANBERRY
     Indication: URINARY TRACT INFECTION
     Dosage: 500 MG, UNK
     Route: 048
  7. FEMARA [Suspect]
     Active Substance: LETROZOLE
     Indication: AROMATASE INHIBITION THERAPY
  8. VITAMIN D3 [Concomitant]
     Active Substance: CHOLECALCIFEROL
     Indication: HYPOVITAMINOSIS
     Dosage: 1000 IU, UNK (TAKE 2 OF THEM)
     Route: 048
  9. VITAMIN K [Concomitant]
     Active Substance: PHYTONADIONE
     Indication: HYPOVITAMINOSIS
     Dosage: 100 UG, UNK
  10. LUNESTA [Concomitant]
     Active Substance: ESZOPICLONE
     Indication: INSOMNIA
     Dosage: 2 MG, UNK (BED TIME)
     Route: 048
     Dates: start: 20171119
  11. IBRANCE [Suspect]
     Active Substance: PALBOCICLIB
     Indication: LYMPHOMA
     Dosage: 100 MG, 1X/DAY (ONCE A DAY WITH DINNER)
     Route: 048
     Dates: start: 201708
  12. FEMARA [Suspect]
     Active Substance: LETROZOLE
     Indication: BREAST CANCER METASTATIC
     Dosage: 2.5 MG, 1X/DAY
     Route: 048
  13. CLONIDINE. [Concomitant]
     Active Substance: CLONIDINE
     Indication: BLOOD PRESSURE MEASUREMENT
  14. MIRALAX [Concomitant]
     Active Substance: POLYETHYLENE GLYCOL 3350
     Dosage: UNK

REACTIONS (4)
  - Neutrophil count decreased [Unknown]
  - White blood cell count decreased [Unknown]
  - Therapeutic response unexpected [Unknown]
  - Herbal interaction [Unknown]
